FAERS Safety Report 7660177-1 (Version None)
Quarter: 2011Q3

REPORT INFORMATION
  Report Type: 
  Country: None (occurrence: None)
  Receive Date: 20110805
  Receipt Date: 20110728
  Transmission Date: 20111222
  Serious: Yes (Hospitalization)
  Sender: FDA-Public Use
  Company Number: PHHO2011GB12982

PATIENT
  Sex: Male
  Weight: 32.4 kg

DRUGS (2)
  1. GLEEVEC [Suspect]
     Indication: ACUTE LYMPHOCYTIC LEUKAEMIA
     Dosage: 300 MG, UNK
     Dates: start: 20110709
  2. STEROIDS [Suspect]

REACTIONS (2)
  - FLUID RETENTION [None]
  - EXTRASYSTOLES [None]
